FAERS Safety Report 17488937 (Version 1)
Quarter: 2020Q1

REPORT INFORMATION
  Report Type: Spontaneous
  Country: FR (occurrence: FR)
  Receive Date: 20200303
  Receipt Date: 20200303
  Transmission Date: 20200409
  Serious: Yes (Other)
  Sender: FDA-Public Use
  Company Number: FR-PFIZER INC-2020090080

PATIENT
  Age: 30 Year
  Sex: Male

DRUGS (2)
  1. STILNOX [Suspect]
     Active Substance: ZOLPIDEM TARTRATE
     Dosage: 20 DF, DAILY (20 TABLETS / DAY)
     Route: 048
     Dates: start: 2019
  2. ALPRAZOLAM. [Suspect]
     Active Substance: ALPRAZOLAM
     Dosage: UNK
     Route: 048
     Dates: start: 2019

REACTIONS (3)
  - Circadian rhythm sleep disorder [Unknown]
  - Intentional product misuse [Unknown]
  - Behaviour disorder [Unknown]

NARRATIVE: CASE EVENT DATE: 2019
